APPROVED DRUG PRODUCT: QUINAPRIL HYDROCHLORIDE AND HYDROCHLOROTHIAZIDE
Active Ingredient: HYDROCHLOROTHIAZIDE; QUINAPRIL HYDROCHLORIDE
Strength: 25MG;EQ 20MG BASE
Dosage Form/Route: TABLET;ORAL
Application: A078211 | Product #003
Applicant: SUN PHARMACEUTICAL INDUSTRIES LTD
Approved: Mar 4, 2009 | RLD: No | RS: No | Type: DISCN